FAERS Safety Report 8451609 (Version 3)
Quarter: 2012Q4

REPORT INFORMATION
  Report Type: 
  Country: US (occurrence: US)
  Receive Date: 20120309
  Receipt Date: 20120927
  Transmission Date: 20130627
  Serious: No
  Sender: FDA-Public Use
  Company Number: US-AMGEN-USASP2012010100

PATIENT
  Age: 65 Year
  Sex: Female
  Weight: 60.32 kg

DRUGS (6)
  1. PROLIA [Suspect]
     Indication: OSTEOPOROSIS POSTMENOPAUSAL
     Dosage: 60 mg, q6mo
     Route: 058
     Dates: start: 20111004
  2. CALCIUM WITH VITAMIN D [Concomitant]
     Dosage: UNK
  3. LEVOXYL [Concomitant]
     Indication: HYPOTHYROIDISM
     Dosage: 150 mug, qwk
     Route: 048
     Dates: start: 1976
  4. ZOLPIDEM [Concomitant]
     Indication: INSOMNIA
     Dosage: 5 mg, qhs
     Route: 048
     Dates: start: 2010
  5. CHLORHEXIDINE GLUCONATE [Concomitant]
     Dosage: UNK
     Dates: start: 20111019
  6. WOMEN^S MULTI [Concomitant]
     Dosage: UNK

REACTIONS (4)
  - Neck pain [Recovered/Resolved]
  - Weight increased [Unknown]
  - Musculoskeletal pain [Recovered/Resolved]
  - Arthralgia [Unknown]
